FAERS Safety Report 21896645 (Version 4)
Quarter: 2024Q1

REPORT INFORMATION
  Report Type: Spontaneous
  Country: FR (occurrence: FR)
  Receive Date: 20230123
  Receipt Date: 20240311
  Transmission Date: 20240410
  Serious: Yes (Other)
  Sender: FDA-Public Use
  Company Number: FR-UCBSA-2023002776

PATIENT
  Age: 20 Year
  Sex: Female
  Weight: 45 kg

DRUGS (1)
  1. FINTEPLA [Suspect]
     Active Substance: FENFLURAMINE
     Indication: Seizure
     Dosage: UNK
     Dates: start: 20220523, end: 20221201

REACTIONS (4)
  - Pericardial effusion [Unknown]
  - Weight increased [Unknown]
  - Aggression [Unknown]
  - Drug ineffective [Unknown]

NARRATIVE: CASE EVENT DATE: 20220101
